FAERS Safety Report 8885139 (Version 1)
Quarter: 2012Q4

REPORT INFORMATION
  Report Type: 
  Country: US (occurrence: US)
  Receive Date: 20121102
  Receipt Date: 20121102
  Transmission Date: 20130627
  Serious: No
  Sender: FDA-Public Use
  Company Number: US-B.I. PHARMACEUTICALS,INC./RIDGEFIELD-2012-BP-26954BP

PATIENT
  Age: 75 None
  Sex: Female

DRUGS (12)
  1. PRADAXA [Suspect]
     Indication: ATRIAL FIBRILLATION
     Dosage: 150 mg
     Route: 048
     Dates: start: 20120810, end: 20121029
  2. SLO-NIACIN [Concomitant]
     Dosage: 1000 mg
  3. VITAMIN B1 [Concomitant]
     Dosage: 100 mg
  4. MULTIVITAMIN [Concomitant]
  5. SIMVASTATIN [Concomitant]
     Dosage: 20 mg
  6. FISH OIL [Concomitant]
     Dosage: 2400 mg
  7. CO Q 10 [Concomitant]
     Dosage: 200 mg
  8. VITAMIN D3 [Concomitant]
     Dosage: 1000 U
  9. LANTUS INSULIN [Concomitant]
  10. METFORMIN [Concomitant]
     Dosage: 2000 mg
  11. RAMIPRIL [Concomitant]
     Dosage: 10 mg
  12. VITAMIN C [Concomitant]
     Dosage: 500 mg

REACTIONS (3)
  - Rash [Recovered/Resolved with Sequelae]
  - Headache [Not Recovered/Not Resolved]
  - Epistaxis [Recovered/Resolved]
